FAERS Safety Report 15706968 (Version 1)
Quarter: 2018Q4

REPORT INFORMATION
  Report Type: Report from Study
  Country: CA (occurrence: CA)
  Receive Date: 20181210
  Receipt Date: 20181210
  Transmission Date: 20190205
  Serious: Yes (Hospitalization)
  Sender: FDA-Public Use
  Company Number: CA-HLSUS-2018-CA-001702

PATIENT
  Age: 34 Year
  Sex: Male
  Weight: 63.4 kg

DRUGS (1)
  1. CLOZARIL [Suspect]
     Active Substance: CLOZAPINE
     Indication: SCHIZOPHRENIA
     Dosage: TITRATED UPTO 300 MG UPON DISCHARGE
     Route: 048
     Dates: start: 20181003

REACTIONS (3)
  - Thrombocytopenia [Recovered/Resolved]
  - Iron deficiency anaemia [Unknown]
  - Gastrointestinal haemorrhage [Unknown]

NARRATIVE: CASE EVENT DATE: 20181004
